FAERS Safety Report 7270576-8 (Version None)
Quarter: 2011Q1

REPORT INFORMATION
  Report Type: 
  Country: None (occurrence: None)
  Receive Date: 20110124
  Receipt Date: 20110124
  Transmission Date: 20110831
  Serious: Yes (Hospitalization)
  Sender: FDA-Public Use
  Company Number: None

PATIENT
  Age: 35 Year
  Sex: Female

DRUGS (3)
  1. VENLAFAXINE [Suspect]
     Indication: EATING DISORDER
     Dosage: 300 MG -TWO 150 MG CAPSULES- DAILY PO
     Route: 048
     Dates: start: 20101017, end: 20101231
  2. VENLAFAXINE [Suspect]
     Indication: DEPRESSION
     Dosage: 300 MG -TWO 150 MG CAPSULES- DAILY PO
     Route: 048
     Dates: start: 20101017, end: 20101231
  3. VENLAFAXINE [Suspect]
     Indication: ANXIETY
     Dosage: 300 MG -TWO 150 MG CAPSULES- DAILY PO
     Route: 048
     Dates: start: 20101017, end: 20101231

REACTIONS (10)
  - PRODUCT SUBSTITUTION ISSUE [None]
  - SOMNOLENCE [None]
  - ANXIETY [None]
  - EATING DISORDER [None]
  - PANIC ATTACK [None]
  - SUICIDE ATTEMPT [None]
  - DEPRESSION [None]
  - CONDITION AGGRAVATED [None]
  - VOMITING [None]
  - SUICIDAL IDEATION [None]
